FAERS Safety Report 6861383-6 (Version None)
Quarter: 2010Q3

REPORT INFORMATION
  Report Type: 
  Country: None (occurrence: None)
  Receive Date: 20100720
  Receipt Date: 20100708
  Transmission Date: 20110219
  Serious: Yes (Hospitalization, Other)
  Sender: FDA-Public Use
  Company Number: US-BAYER-201013957NA

PATIENT
  Age: 48 Year
  Sex: Female

DRUGS (8)
  1. YAZ [Suspect]
     Indication: PRODUCT USED FOR UNKNOWN INDICATION
     Route: 048
     Dates: start: 20071001, end: 20081201
  2. YASMIN [Suspect]
     Indication: PRODUCT USED FOR UNKNOWN INDICATION
     Route: 048
  3. AMOXICILLIN [Concomitant]
  4. ZOLPIDEM TARTRATE [Concomitant]
  5. FAMOTIDINE [Concomitant]
  6. LIPITOR [Concomitant]
  7. CLONAZEPAM [Concomitant]
  8. VALTREX [Concomitant]

REACTIONS (4)
  - ANXIETY [None]
  - CEREBROVASCULAR ACCIDENT [None]
  - DEEP VEIN THROMBOSIS [None]
  - THROMBOSIS [None]
